FAERS Safety Report 23887854 (Version 1)
Quarter: 2024Q2

REPORT INFORMATION
  Report Type: Spontaneous
  Country: US (occurrence: US)
  Receive Date: 20240523
  Receipt Date: 20240523
  Transmission Date: 20240716
  Serious: Yes (Other)
  Sender: FDA-Public Use
  Company Number: US-APELLIS-2024-APL-0000007

PATIENT

DRUGS (1)
  1. SYFOVRE [Suspect]
     Active Substance: PEGCETACOPLAN
     Indication: Product used for unknown indication
     Dosage: UNKNOWN

REACTIONS (3)
  - Uveitis [Unknown]
  - Vitreous floaters [Unknown]
  - Product quality issue [Unknown]
